FAERS Safety Report 23697926 (Version 2)
Quarter: 2024Q2

REPORT INFORMATION
  Report Type: Spontaneous
  Country: JP (occurrence: JP)
  Receive Date: 20240402
  Receipt Date: 20240424
  Transmission Date: 20240715
  Serious: No
  Sender: FDA-Public Use
  Company Number: JP-Eisai-202315909_DVG_P_1

PATIENT
  Sex: Male

DRUGS (1)
  1. DAYVIGO [Suspect]
     Active Substance: LEMBOREXANT
     Indication: Product used for unknown indication
     Dosage: FREQUENCY UNKNOWN
     Route: 048
     Dates: start: 202401

REACTIONS (3)
  - Sleep paralysis [Unknown]
  - Nightmare [Unknown]
  - Middle insomnia [Unknown]

NARRATIVE: CASE EVENT DATE: 20240101
